FAERS Safety Report 9319462 (Version 9)
Quarter: 2016Q4

REPORT INFORMATION
  Report Type: Spontaneous
  Country: US (occurrence: US)
  Receive Date: 20130530
  Receipt Date: 20161228
  Transmission Date: 20170207
  Serious: Yes (Hospitalization)
  Sender: FDA-Public Use
  Company Number: US-GLAXOSMITHKLINE-A0984917A

PATIENT
  Age: 27 Year
  Sex: Female

DRUGS (15)
  1. FLOLAN [Suspect]
     Active Substance: EPOPROSTENOL SODIUM
     Indication: PULMONARY ARTERIAL HYPERTENSION
     Dosage: 16 NG/KG/MIN CONTINUOUSLY (CONCENTRATION 15,000 NG/ML; 1.5 MG VIAL STRENGTH).16 NG/KG/MIN CONTI[...]
     Route: 042
     Dates: start: 20100630
  2. FLOLAN [Suspect]
     Active Substance: EPOPROSTENOL SODIUM
     Dosage: UNK
     Dates: start: 20100630
  3. FLOLAN [Suspect]
     Active Substance: EPOPROSTENOL SODIUM
     Dosage: UNK
     Dates: start: 20100630
  4. FLOLAN [Suspect]
     Active Substance: EPOPROSTENOL SODIUM
     Dosage: 17 NG/KG/MIN, UNK
     Route: 042
     Dates: start: 20100729
  5. FLOLAN [Suspect]
     Active Substance: EPOPROSTENOL SODIUM
     Dosage: 17 NG/KG/MIN, CO
     Route: 042
  6. COUMADIN [Concomitant]
     Active Substance: WARFARIN SODIUM
  7. FLOLAN [Suspect]
     Active Substance: EPOPROSTENOL SODIUM
     Dosage: 15 NG/KG/MIN CONTINUOUS, CONCENTRATION: 15,000 NG/ML; PUMP RATE: 76 ML/DAY; VIAL STRENGTH: 1.5 MG
     Route: 042
     Dates: start: 20100729
  8. FLOLAN [Suspect]
     Active Substance: EPOPROSTENOL SODIUM
     Dosage: UNK
     Dates: start: 20100630
  9. FLOLAN [Suspect]
     Active Substance: EPOPROSTENOL SODIUM
     Dosage: UNK
  10. FLOLAN [Suspect]
     Active Substance: EPOPROSTENOL SODIUM
     Indication: PULMONARY ARTERIAL HYPERTENSION
  11. TYVASO [Suspect]
     Active Substance: TREPROSTINIL
     Indication: PRODUCT USED FOR UNKNOWN INDICATION
     Dosage: UNK, U
     Route: 065
  12. LETAIRIS [Concomitant]
     Active Substance: AMBRISENTAN
  13. FLOLAN [Suspect]
     Active Substance: EPOPROSTENOL SODIUM
     Dosage: UNK
     Dates: start: 20100630
  14. FLOLAN [Suspect]
     Active Substance: EPOPROSTENOL SODIUM
     Dosage: 17 NG/KG/MIN CONTINUOUS, CONCENTRATION: 15,000 NG/ML; PUMP RATE: 86 ML/DAY; VIAL STRENGTH: 1.5 MG
     Route: 042
     Dates: start: 20100729
  15. FLOLAN [Suspect]
     Active Substance: EPOPROSTENOL SODIUM
     Dosage: 18 DF, CO

REACTIONS (16)
  - Hyperhidrosis [Recovered/Resolved]
  - Catheter site erythema [Unknown]
  - Catheter site vesicles [Unknown]
  - Pain in extremity [Recovered/Resolved]
  - Application site erythema [Recovered/Resolved]
  - Catheter site pain [Recovered/Resolved]
  - Dyspnoea [Unknown]
  - Complication associated with device [Unknown]
  - Application site scab [Not Recovered/Not Resolved]
  - Catheter site swelling [Unknown]
  - Catheter site inflammation [Unknown]
  - Pruritus [Recovered/Resolved]
  - Alopecia [Recovered/Resolved]
  - Pyrexia [Unknown]
  - Underdose [Unknown]
  - Dysphonia [Unknown]

NARRATIVE: CASE EVENT DATE: 2013
